FAERS Safety Report 6059670-7 (Version None)
Quarter: 2009Q1

REPORT INFORMATION
  Report Type: 
  Country: None (occurrence: None)
  Receive Date: 20090130
  Receipt Date: 20090120
  Transmission Date: 20090719
  Serious: Yes (Hospitalization)
  Sender: FDA-Public Use
  Company Number: JP-CELGENEUS-087-C5013-09011038

PATIENT
  Sex: Male
  Weight: 56.9 kg

DRUGS (17)
  1. REVLIMID [Suspect]
     Indication: MULTIPLE MYELOMA
     Route: 048
     Dates: start: 20080421
  2. DEXAMETHASONE [Suspect]
     Indication: MULTIPLE MYELOMA
     Route: 048
     Dates: start: 20081230
  3. DEXAMETHASONE [Suspect]
     Route: 048
     Dates: start: 20080421
  4. ZANTAC [Concomitant]
     Route: 048
     Dates: start: 20080716
  5. BAKTAR [Concomitant]
     Indication: INFECTION PROPHYLAXIS
     Route: 048
     Dates: start: 20080426
  6. SILECE [Concomitant]
     Indication: INSOMNIA
     Route: 048
     Dates: start: 20080424
  7. EURODIN [Concomitant]
     Indication: INSOMNIA
     Route: 048
     Dates: start: 20070115
  8. BIOFERMIN [Concomitant]
     Dosage: 1-3 G
     Route: 048
     Dates: start: 20081018
  9. HIRUDOID [Concomitant]
     Route: 065
     Dates: start: 20080421
  10. BARAMYCIN [Concomitant]
     Route: 065
     Dates: start: 20080505
  11. MAGNESIUM OXIDE [Concomitant]
     Indication: CONSTIPATION
     Route: 048
     Dates: start: 20080424
  12. LAXOBERON [Concomitant]
     Indication: CONSTIPATION
     Route: 048
     Dates: start: 20080425
  13. ALOSENN [Concomitant]
     Indication: CONSTIPATION
     Route: 048
     Dates: start: 20080426
  14. POSTERISAN [Concomitant]
     Route: 065
     Dates: start: 20080504
  15. CLARITHROMYCIN [Concomitant]
     Indication: SINUSITIS
     Route: 048
     Dates: start: 20090116
  16. MUCODYNE [Concomitant]
     Indication: SINUSITIS
     Route: 048
     Dates: start: 20081215
  17. ACDEAM [Concomitant]
     Indication: SINUSITIS
     Route: 048
     Dates: start: 20081229

REACTIONS (1)
  - MACULOPATHY [None]
